FAERS Safety Report 8544912-6 (Version None)
Quarter: 2012Q3

REPORT INFORMATION
  Report Type: 
  Country: None (occurrence: None)
  Receive Date: 20120727
  Receipt Date: 20120723
  Transmission Date: 20120928
  Serious: No
  Sender: FDA-Public Use
  Company Number: US-PFIZER INC-2012177754

PATIENT
  Sex: Male
  Weight: 104 kg

DRUGS (1)
  1. ADVIL [Suspect]
     Indication: HEADACHE
     Dosage: UNK, AS NEEDED
     Dates: end: 20120719

REACTIONS (3)
  - PRODUCT ODOUR ABNORMAL [None]
  - POOR QUALITY DRUG ADMINISTERED [None]
  - MALAISE [None]
